FAERS Safety Report 9972957 (Version 1)
Quarter: 2014Q1

REPORT INFORMATION
  Report Type: Spontaneous
  Country: CA (occurrence: CA)
  Receive Date: 20140306
  Receipt Date: 20140306
  Transmission Date: 20141002
  Serious: Yes (Other)
  Sender: FDA-Public Use
  Company Number: CA-ASTRAZENECA-2014SE14599

PATIENT
  Age: 71 Year
  Sex: Female

DRUGS (5)
  1. SYMBICORT TURBUHALER [Suspect]
     Indication: ASTHMA
     Dosage: 200/6 MCG, ONCE DAILY
     Route: 055
     Dates: start: 2008
  2. SYMBICORT TURBUHALER [Suspect]
     Indication: ASTHMA
     Dosage: UNKNOWN DOSE, TWO PUFFS, TWICE A DAY
     Route: 055
  3. ATROVENT [Concomitant]
     Indication: ASTHMA
     Dosage: 4 DOSES
  4. ATROVENT [Concomitant]
     Indication: CHRONIC OBSTRUCTIVE PULMONARY DISEASE
     Dosage: 4 DOSES
  5. VENTOLIN [Concomitant]

REACTIONS (5)
  - Cardiac failure [Recovering/Resolving]
  - Chronic obstructive pulmonary disease [Recovering/Resolving]
  - Dyspnoea [Recovering/Resolving]
  - Fatigue [Not Recovered/Not Resolved]
  - Intentional drug misuse [Unknown]
